FAERS Safety Report 7205322-7 (Version None)
Quarter: 2010Q4

REPORT INFORMATION
  Report Type: 
  Country: None (occurrence: None)
  Receive Date: 20101231
  Receipt Date: 20101217
  Transmission Date: 20110411
  Serious: Yes (Hospitalization)
  Sender: FDA-Public Use
  Company Number: US-CELGENEUS-163-21880-10122086

PATIENT
  Sex: Female

DRUGS (1)
  1. REVLIMID [Suspect]
     Route: 048
     Dates: start: 20101201, end: 20100101

REACTIONS (3)
  - ABDOMINAL PAIN [None]
  - FULL BLOOD COUNT DECREASED [None]
  - HAEMORRHAGE [None]
